FAERS Safety Report 15994263 (Version 1)
Quarter: 2019Q1

REPORT INFORMATION
  Report Type: Spontaneous
  Country: CA (occurrence: CA)
  Receive Date: 20190222
  Receipt Date: 20190222
  Transmission Date: 20190418
  Serious: Yes (Hospitalization)
  Sender: FDA-Public Use
  Company Number: CA-CELLTRION INC.-2019CA018847

PATIENT

DRUGS (7)
  1. INFLECTRA [Suspect]
     Active Substance: INFLIXIMAB-DYYB
     Dosage: 390 MG, CYCLIC, EVERY 6 WEEKS
     Route: 042
     Dates: start: 20181115
  2. IRON [Concomitant]
     Active Substance: IRON
     Dosage: UNK
  3. CIPROFLOXACIN. [Concomitant]
     Active Substance: CIPROFLOXACIN
     Dosage: 500 MG, BID(TWICE A DAY) (FOR 3 WEEKS)
     Dates: start: 2018
  4. INFLECTRA [Suspect]
     Active Substance: INFLIXIMAB-DYYB
     Dosage: 390 MG, CYCLIC, EVERY 6 WEEKS
     Route: 042
     Dates: start: 20181224
  5. METRONIDAZOLE. [Concomitant]
     Active Substance: METRONIDAZOLE
     Dosage: 500 MG,BID (FOR 3 WEEKS)
     Dates: start: 2018
  6. INFLECTRA [Suspect]
     Active Substance: INFLIXIMAB-DYYB
     Indication: CROHN^S DISEASE
     Dosage: 330 MG/KG, EVERY 0,2,6 WEEKS, THEN EVERY 8 WEEKS
     Route: 042
     Dates: start: 20180411, end: 20181001
  7. PREDNISONE. [Concomitant]
     Active Substance: PREDNISONE
     Dosage: 40 MG TAPERING -CURRENTLY AT 10 MG

REACTIONS (2)
  - Phobia [Not Recovered/Not Resolved]
  - Panic attack [Not Recovered/Not Resolved]
